FAERS Safety Report 4416152-3 (Version None)
Quarter: 2004Q3

REPORT INFORMATION
  Report Type: 
  Country: None (occurrence: None)
  Receive Date: 20040730
  Receipt Date: 20040720
  Transmission Date: 20050211
  Serious: Yes (Death)
  Sender: FDA-Public Use
  Company Number: 163-20785-04070032

PATIENT
  Age: 67 Year
  Sex: Male

DRUGS (1)
  1. THALOMID [Suspect]
     Indication: AMYLOIDOSIS
     Dosage: 100 MG, QD, ORAL
     Route: 048
     Dates: start: 20040107

REACTIONS (2)
  - AMYLOIDOSIS [None]
  - DISEASE PROGRESSION [None]
